FAERS Safety Report 14567857 (Version 4)
Quarter: 2018Q1

REPORT INFORMATION
  Report Type: Spontaneous
  Country: RU (occurrence: RU)
  Receive Date: 20180223
  Receipt Date: 20180327
  Transmission Date: 20180509
  Serious: Yes (Other)
  Sender: FDA-Public Use
  Company Number: RU-ASTRAZENECA-2018SE22127

PATIENT
  Age: 60 Year
  Sex: Female
  Weight: 75 kg

DRUGS (6)
  1. AMARYL [Concomitant]
     Active Substance: GLIMEPIRIDE
  2. SOTAHEXAL [Concomitant]
     Active Substance: SOTALOL
  3. FORXIGA [Suspect]
     Active Substance: DAPAGLIFLOZIN
     Indication: TYPE 2 DIABETES MELLITUS
     Route: 048
     Dates: start: 201707
  4. GALVUS [Concomitant]
     Active Substance: VILDAGLIPTIN
  5. METFORMIN [Concomitant]
     Active Substance: METFORMIN HYDROCHLORIDE
  6. TORASEMIDE [Concomitant]
     Active Substance: TORSEMIDE

REACTIONS (4)
  - Gait disturbance [Unknown]
  - Ligament sprain [Unknown]
  - Ankle fracture [Recovering/Resolving]
  - Fall [Unknown]

NARRATIVE: CASE EVENT DATE: 20180118
